FAERS Safety Report 19369176 (Version 1)
Quarter: 2021Q2

REPORT INFORMATION
  Report Type: Spontaneous
  Country: CN (occurrence: CN)
  Receive Date: 20210603
  Receipt Date: 20210603
  Transmission Date: 20210717
  Serious: Yes (Hospitalization)
  Sender: FDA-Public Use
  Company Number: CN-BAYER-2021-150018

PATIENT
  Age: 64 Year
  Sex: Male
  Weight: 50 kg

DRUGS (5)
  1. UBENIMEX [Concomitant]
     Active Substance: UBENIMEX
     Indication: IMMUNE DISORDER PROPHYLAXIS
     Dosage: 30 MG, QD
     Route: 048
     Dates: start: 20210309, end: 20210426
  2. NEXAVAR [Suspect]
     Active Substance: SORAFENIB
     Indication: HEPATIC CANCER
     Dosage: 0.2 G, BID
     Route: 048
     Dates: start: 20201130, end: 20210415
  3. BARACLUDE [Suspect]
     Active Substance: ENTECAVIR
     Indication: HEPATITIS B
     Dosage: 0.5 MG, QD
     Route: 048
     Dates: start: 20200930, end: 20210415
  4. BARACLUDE [Suspect]
     Active Substance: ENTECAVIR
     Indication: HEPATITIS B
     Dosage: 0.5 MG, QD
     Route: 048
     Dates: start: 20210427
  5. MEI NENG [Concomitant]
     Indication: HEPATOBILIARY DISORDER PROPHYLAXIS
     Dosage: 25 MG, TID
     Route: 048
     Dates: start: 20210326, end: 20210415

REACTIONS (2)
  - Off label use [None]
  - Acute hepatic failure [Recovering/Resolving]

NARRATIVE: CASE EVENT DATE: 20201130
